FAERS Safety Report 20087068 (Version 2)
Quarter: 2021Q4

REPORT INFORMATION
  Report Type: Spontaneous
  Country: US (occurrence: US)
  Receive Date: 20211118
  Receipt Date: 20211129
  Transmission Date: 20220304
  Serious: Yes (Life-Threatening, Hospitalization)
  Sender: FDA-Public Use
  Company Number: US-TEVA-2021-US-1977485

PATIENT
  Age: 20 Year
  Sex: Female

DRUGS (3)
  1. ETOPOSIDE [Interacting]
     Active Substance: ETOPOSIDE
     Indication: Gestational trophoblastic tumour
     Dosage: (CYCLE 1, DAY 1 [C1D1])
     Route: 065
  2. CISPLATIN [Concomitant]
     Active Substance: CISPLATIN
     Indication: Gestational trophoblastic tumour
     Dosage: (CYCLE 1, DAY 1 [C1D1])
     Route: 065
  3. HEPARIN [Concomitant]
     Active Substance: HEPARIN SODIUM
     Indication: Product used for unknown indication
     Dosage: DRIP
     Route: 065

REACTIONS (5)
  - Tachycardia [Unknown]
  - Hypoxia [Unknown]
  - Hypotension [Unknown]
  - Drug-device interaction [Unknown]
  - Device failure [Unknown]
